FAERS Safety Report 5751704-X (Version None)
Quarter: 2008Q2

REPORT INFORMATION
  Report Type: 
  Country: None (occurrence: None)
  Receive Date: 20080527
  Receipt Date: 20080513
  Transmission Date: 20081010
  Serious: Yes (Life-Threatening, Other)
  Sender: FDA-Public Use
  Company Number: 08H-163-0314281-00

PATIENT
  Age: 60 Year
  Sex: Male
  Weight: 83 kg

DRUGS (6)
  1. BUPIVACAINE [Suspect]
     Indication: NERVE BLOCK
     Dosage: 10 ML, NOT REPORTED, NOT REPORTED
  2. MEPIVACAINE HYDROCHLORIDE INJECTION (CARBOCAINE HYDROCHLORIDE INJECTIO [Suspect]
     Indication: NERVE BLOCK
     Dosage: 30 ML, NOT REPORTED, NOT REPORTED
  3. OXYGEN (OXYGEN) [Concomitant]
  4. MIDAZOLAM HCL [Concomitant]
  5. 8.4% SODIUM BICARBONATE (SODIUM BICARBONATE) [Concomitant]
  6. 1:200000 EPINEPHRINE (EPINEPHRINE) [Concomitant]

REACTIONS (6)
  - BUNDLE BRANCH BLOCK RIGHT [None]
  - CARDIOPULMONARY FAILURE [None]
  - DRUG INTERACTION [None]
  - MITRAL VALVE INCOMPETENCE [None]
  - TORSADE DE POINTES [None]
  - VENTRICULAR FIBRILLATION [None]
